FAERS Safety Report 9325572 (Version 2)
Quarter: 2013Q2

REPORT INFORMATION
  Report Type: Spontaneous
  Country: IT (occurrence: IT)
  Receive Date: 20130604
  Receipt Date: 20130605
  Transmission Date: 20140414
  Serious: Yes (Death)
  Sender: FDA-Public Use
  Company Number: IT-ROCHE-1232072

PATIENT
  Age: 86 Year
  Sex: Female

DRUGS (2)
  1. LUCENTIS [Suspect]
     Indication: MACULOPATHY
     Route: 050
     Dates: start: 20120712
  2. LUCENTIS [Suspect]
     Indication: OFF LABEL USE
     Route: 050
     Dates: start: 20120816, end: 20120816

REACTIONS (1)
  - Death [Fatal]
